FAERS Safety Report 15124788 (Version 5)
Quarter: 2020Q2

REPORT INFORMATION
  Report Type: Spontaneous
  Country: US (occurrence: US)
  Receive Date: 20180710
  Receipt Date: 20200513
  Transmission Date: 20200713
  Serious: Yes (Other)
  Sender: FDA-Public Use
  Company Number: US-PFIZER INC-2018271330

PATIENT
  Age: 58 Year
  Sex: Male

DRUGS (1)
  1. XELJANZ XR [Suspect]
     Active Substance: TOFACITINIB CITRATE
     Indication: RHEUMATOID ARTHRITIS
     Dosage: 11 MG, DAILY
     Route: 048
     Dates: start: 2019

REACTIONS (10)
  - Intentional product misuse [Unknown]
  - Liver function test increased [Unknown]
  - Depressed mood [Unknown]
  - Cough [Recovering/Resolving]
  - Dental discomfort [Unknown]
  - Bronchitis [Recovering/Resolving]
  - Upper respiratory tract infection [Unknown]
  - Latent tuberculosis [Unknown]
  - Chronic obstructive pulmonary disease [Unknown]
  - Lipids increased [Unknown]
